FAERS Safety Report 7014226-4 (Version None)
Quarter: 2010Q3

REPORT INFORMATION
  Report Type: 
  Country: None (occurrence: None)
  Receive Date: 20100927
  Receipt Date: 20100915
  Transmission Date: 20110219
  Serious: Yes (Other)
  Sender: FDA-Public Use
  Company Number: US-JNJFOC-20100905928

PATIENT
  Age: 28 Year
  Sex: Female

DRUGS (4)
  1. PREZISTA [Suspect]
     Indication: HIV INFECTION
     Route: 065
  2. TRUVADA [Concomitant]
     Indication: HIV INFECTION
     Route: 065
  3. NORVIR [Concomitant]
     Indication: HIV INFECTION
     Route: 065
  4. INVIRASE [Concomitant]
     Indication: HIV INFECTION
     Route: 065

REACTIONS (2)
  - DRUG EXPOSURE DURING PREGNANCY [None]
  - PREMATURE LABOUR [None]
